FAERS Safety Report 18095478 (Version 1)
Quarter: 2020Q3

REPORT INFORMATION
  Report Type: Spontaneous
  Country: AU (occurrence: AU)
  Receive Date: 20200731
  Receipt Date: 20200731
  Transmission Date: 20201103
  Serious: Yes (Other)
  Sender: FDA-Public Use
  Company Number: AU-ALKEM LABORATORIES LIMITED-AU-ALKEM-2020-03997

PATIENT
  Age: 64 Year
  Sex: Male

DRUGS (5)
  1. OLANZAPINE. [Suspect]
     Active Substance: OLANZAPINE
     Indication: PRODUCT USED FOR UNKNOWN INDICATION
     Dosage: UNK
     Route: 065
  2. ESCITALOPRAM [Suspect]
     Active Substance: ESCITALOPRAM OXALATE
     Indication: PRODUCT USED FOR UNKNOWN INDICATION
     Dosage: UNK
     Route: 065
  3. CLOPINE [Suspect]
     Active Substance: CLOZAPINE
     Indication: PRODUCT USED FOR UNKNOWN INDICATION
     Dosage: UNK
     Route: 065
  4. SINEMET [Suspect]
     Active Substance: CARBIDOPA\LEVODOPA
     Indication: PRODUCT USED FOR UNKNOWN INDICATION
     Dosage: UNK
     Route: 065
  5. ROSUVASTATIN. [Suspect]
     Active Substance: ROSUVASTATIN
     Indication: PRODUCT USED FOR UNKNOWN INDICATION
     Dosage: UNK
     Route: 065

REACTIONS (15)
  - Aspartate aminotransferase increased [Unknown]
  - Blood triglycerides increased [Unknown]
  - Blood creatine phosphokinase increased [Unknown]
  - Alanine aminotransferase increased [Unknown]
  - Eosinophil count increased [Unknown]
  - Orthostatic hypotension [Unknown]
  - Hypersensitivity myocarditis [Unknown]
  - Blood albumin decreased [Unknown]
  - Blood alkaline phosphatase increased [Unknown]
  - Blood cholesterol increased [Unknown]
  - Gamma-glutamyltransferase increased [Unknown]
  - Neutrophilia [Unknown]
  - Troponin increased [Unknown]
  - Liver function test abnormal [Unknown]
  - White blood cell count increased [Unknown]
